FAERS Safety Report 8334149-8 (Version None)
Quarter: 2012Q2

REPORT INFORMATION
  Report Type: 
  Country: None (occurrence: None)
  Receive Date: 20120503
  Receipt Date: 20110308
  Transmission Date: 20120825
  Serious: No
  Sender: FDA-Public Use
  Company Number: US-TEVA-2011001083

PATIENT
  Sex: Male
  Weight: 88.53 kg

DRUGS (2)
  1. NUVIGIL [Suspect]
     Route: 048
     Dates: start: 20110307, end: 20110307
  2. NUVIGIL [Suspect]
     Indication: CIRCADIAN RHYTHM SLEEP DISORDER
     Route: 048
     Dates: start: 20110302, end: 20110305

REACTIONS (3)
  - NON-CARDIAC CHEST PAIN [None]
  - MYALGIA [None]
  - INSOMNIA [None]
